FAERS Safety Report 7265875-X (Version None)
Quarter: 2011Q1

REPORT INFORMATION
  Report Type: 
  Country: None (occurrence: None)
  Receive Date: 20110131
  Receipt Date: 20110121
  Transmission Date: 20110831
  Serious: Yes (Other)
  Sender: FDA-Public Use
  Company Number: B0682085A

PATIENT

DRUGS (1)
  1. REQUIP [Suspect]
     Route: 048

REACTIONS (2)
  - LIVER FUNCTION TEST ABNORMAL [None]
  - HEPATIC FUNCTION ABNORMAL [None]
